FAERS Safety Report 6398342-6 (Version None)
Quarter: 2009Q4

REPORT INFORMATION
  Report Type: 
  Country: None (occurrence: None)
  Receive Date: 20091007
  Receipt Date: 20090928
  Transmission Date: 20100525
  Serious: Yes (Other)
  Sender: FDA-Public Use
  Company Number: 2009SP028004

PATIENT
  Sex: Female
  Weight: 48 kg

DRUGS (1)
  1. MARVELON 21 (DESOGESTREL / ETHINYLESTRADIOL) [Suspect]
     Indication: CONTRACEPTION
     Dosage: ; PO
     Route: 048
     Dates: start: 20050710

REACTIONS (2)
  - SMEAR VAGINAL ABNORMAL [None]
  - UTERINE CARCINOMA IN SITU [None]
